FAERS Safety Report 7656965-8 (Version None)
Quarter: 2011Q3

REPORT INFORMATION
  Report Type: 
  Country: None (occurrence: None)
  Receive Date: 20110804
  Receipt Date: 20110729
  Transmission Date: 20111222
  Serious: Yes (Other)
  Sender: FDA-Public Use
  Company Number: IE-PFIZER INC-2011120816

PATIENT
  Age: 74 Year
  Sex: Female
  Weight: 57.1 kg

DRUGS (3)
  1. FOLIC ACID [Concomitant]
  2. SUTENT [Suspect]
     Indication: METASTATIC RENAL CELL CARCINOMA
     Dosage: 37.5 MG, 1X/DAY,
     Route: 048
     Dates: start: 20101101
  3. GALFER [Concomitant]
     Dosage: 1 DF, 1X/DAY
     Route: 048

REACTIONS (1)
  - CELLULITIS [None]
